FAERS Safety Report 18527850 (Version 1)
Quarter: 2020Q4

REPORT INFORMATION
  Report Type: Spontaneous
  Country: US (occurrence: US)
  Receive Date: 20201120
  Receipt Date: 20201120
  Transmission Date: 20210114
  Serious: Yes (Other)
  Sender: FDA-Public Use
  Company Number: US-ELI_LILLY_AND_COMPANY-US202011005277

PATIENT
  Age: 50 Year
  Sex: Female

DRUGS (2)
  1. LANTUS [Concomitant]
     Active Substance: INSULIN GLARGINE
     Indication: PRODUCT USED FOR UNKNOWN INDICATION
     Dosage: UNK
     Dates: start: 2001
  2. HUMALOG [Suspect]
     Active Substance: INSULIN LISPRO
     Indication: PRODUCT USED FOR UNKNOWN INDICATION
     Dosage: UNK UNK, UNKNOWN
     Route: 065

REACTIONS (11)
  - Neuropathy peripheral [Unknown]
  - Gastrooesophageal reflux disease [Unknown]
  - Colitis [Unknown]
  - Chest pain [Unknown]
  - COVID-19 [Unknown]
  - Myocardial infarction [Unknown]
  - Coronary artery disease [Unknown]
  - Chronic gastritis [Unknown]
  - Breast cancer [Unknown]
  - Diarrhoea [Unknown]
  - Retinopathy [Unknown]
